FAERS Safety Report 22084618 (Version 1)
Quarter: 2023Q1

REPORT INFORMATION
  Report Type: Spontaneous
  Country: None (occurrence: US)
  Receive Date: 20230310
  Receipt Date: 20230310
  Transmission Date: 20230418
  Serious: No
  Sender: FDA-Public Use
  Company Number: US-Pharmascience Inc.-2138918

PATIENT
  Age: 13 Year
  Sex: Male
  Weight: 47 kg

DRUGS (1)
  1. BUSULFAN [Suspect]
     Active Substance: BUSULFAN
     Indication: Bone marrow transplant
     Route: 042
     Dates: start: 20230221, end: 20230221

REACTIONS (2)
  - Drug level below therapeutic [Unknown]
  - Product deposit [Unknown]

NARRATIVE: CASE EVENT DATE: 20230221
